FAERS Safety Report 12976403 (Version 1)
Quarter: 2016Q4

REPORT INFORMATION
  Report Type: Other
  Country: FR (occurrence: FR)
  Receive Date: 20161127
  Receipt Date: 20161127
  Transmission Date: 20170207
  Serious: Yes (Life-Threatening)
  Sender: FDA-Public Use
  Company Number: FR-DEXPHARM-20162274

PATIENT
  Age: 31 Year
  Sex: Female
  Weight: 45 kg

DRUGS (2)
  1. CLONAZEPAM. [Concomitant]
     Active Substance: CLONAZEPAM
  2. LEVETIRACETAM IV [Suspect]
     Active Substance: LEVETIRACETAM
     Indication: STATUS EPILEPTICUS
     Dosage: 750MG/12 HR.
     Route: 041

REACTIONS (1)
  - Electroencephalogram abnormal [Not Recovered/Not Resolved]
